FAERS Safety Report 25655983 (Version 2)
Quarter: 2025Q3

REPORT INFORMATION
  Report Type: Spontaneous
  Country: US (occurrence: US)
  Receive Date: 20250807
  Receipt Date: 20250902
  Transmission Date: 20251020
  Serious: Yes (Other)
  Sender: TEVA
  Company Number: US-TEVA-VS-3358054

PATIENT
  Age: 28 Year
  Sex: Male

DRUGS (6)
  1. VINCRISTINE [Suspect]
     Active Substance: VINCRISTINE
     Indication: B-cell type acute leukaemia
     Route: 065
  2. BLINATUMOMAB [Concomitant]
     Active Substance: BLINATUMOMAB
     Indication: B-cell type acute leukaemia
     Route: 042
     Dates: start: 202403
  3. FIBRINOGEN HUMAN [Suspect]
     Active Substance: FIBRINOGEN HUMAN
     Indication: Prophylaxis
     Dosage: FIBRINOGEN-CONCENTRATE RECEIVED AT 100?MG/DL
     Route: 065
  4. FIBRINOGEN HUMAN [Suspect]
     Active Substance: FIBRINOGEN HUMAN
     Indication: Prophylaxis
     Dosage: FIBRINOGEN-CONCENTRATE RECEIVED AT 150 200?MG/DL ON THE DAY OF PROCEDURES
     Route: 065
  5. PEGASPARGASE [Concomitant]
     Active Substance: PEGASPARGASE
     Indication: B-cell type acute leukaemia
     Route: 065
  6. ENOXAPARIN [Suspect]
     Active Substance: ENOXAPARIN
     Indication: Thrombosis prophylaxis
     Dosage: STARTED RECEIVING FOR 2.5 WEEKS
     Route: 065

REACTIONS (3)
  - Neuropathy peripheral [Unknown]
  - Deep vein thrombosis [Recovered/Resolved]
  - Drug ineffective [Unknown]
